FAERS Safety Report 8857068 (Version 1)
Quarter: 2012Q4

REPORT INFORMATION
  Report Type: 
  Country: US (occurrence: US)
  Receive Date: 20121023
  Receipt Date: 20121023
  Transmission Date: 20130627
  Serious: No
  Sender: FDA-Public Use
  Company Number: US-AMGEN-USASP2012055495

PATIENT
  Sex: Female
  Weight: 86.62 kg

DRUGS (14)
  1. ENBREL [Suspect]
     Indication: PRODUCT USED FOR UNKNOWN INDICATION
     Dosage: 50 mg/ml, qwk
     Route: 058
  2. HUMALOG [Concomitant]
     Dosage: 100/ML
  3. METHOTREXAT                        /00113801/ [Concomitant]
     Dosage: 2.5 mg, UNK
  4. ATENOLOL [Concomitant]
     Dosage: 100 mg, UNK
  5. OMEPRAZOL                          /00661201/ [Concomitant]
     Dosage: 20 mg, UNK
  6. FOLIC ACID [Concomitant]
     Dosage: 1 mg, UNK
  7. VITAMIN D3 [Concomitant]
     Dosage: 400 UNK, UNK
  8. DIGESTIVE ENZYME [Concomitant]
     Dosage: UNK
  9. ALPHA LIPOIC ACID [Concomitant]
     Dosage: 200 mg, UNK
  10. GLUTATHIONE [Concomitant]
     Dosage: 50 mg, UNK
  11. CALCIUM [Concomitant]
     Dosage: 500 mg, UNK
  12. TYLENOL /00020001/ [Concomitant]
     Dosage: 500 mg, UNK
  13. OMEGA 3                            /01334101/ [Concomitant]
     Dosage: 1000 mg, UNK
  14. VITAMIN B6 [Concomitant]
     Dosage: 250 mg, UNK

REACTIONS (8)
  - Gastrointestinal haemorrhage [Unknown]
  - Alopecia [Unknown]
  - Abdominal distension [Unknown]
  - Gastric polyps [Unknown]
  - Vision blurred [Unknown]
  - Erythema [Unknown]
  - Pruritus generalised [Unknown]
  - Large intestine polyp [Unknown]
